FAERS Safety Report 10080040 (Version 3)
Quarter: 2014Q2

REPORT INFORMATION
  Report Type: Spontaneous
  Country: US (occurrence: US)
  Receive Date: 20140415
  Receipt Date: 20140613
  Transmission Date: 20141212
  Serious: Yes (Hospitalization)
  Sender: FDA-Public Use
  Company Number: PHEH2014US007364

PATIENT
  Age: 5 Year
  Sex: Male
  Weight: 27.66 kg

DRUGS (3)
  1. FOCALIN XR [Suspect]
     Indication: ATTENTION DEFICIT/HYPERACTIVITY DISORDER
     Dosage: 5 MG, BID
     Route: 048
     Dates: start: 20140327, end: 20140406
  2. FOCALIN XR [Suspect]
     Dosage: 10 MG, DAILY
     Dates: start: 20140407, end: 20140408
  3. FOCALIN XR [Suspect]
     Dosage: 5 MG, BID
     Route: 048

REACTIONS (3)
  - Altered state of consciousness [Recovered/Resolved]
  - Somnolence [Recovered/Resolved]
  - Fatigue [Recovered/Resolved]
